FAERS Safety Report 13300126 (Version 1)
Quarter: 2017Q1

REPORT INFORMATION
  Report Type: Spontaneous
  Country: IT (occurrence: IT)
  Receive Date: 20170306
  Receipt Date: 20170306
  Transmission Date: 20170428
  Serious: Yes (Hospitalization)
  Sender: FDA-Public Use
  Company Number: IT-ELI_LILLY_AND_COMPANY-IT201703000887

PATIENT
  Age: 37 Year
  Sex: Male

DRUGS (6)
  1. ABASAGLAR [Suspect]
     Active Substance: INSULIN GLARGINE
     Dosage: 14 IU, QD
     Route: 065
  2. INSULIN GLULISINE [Suspect]
     Active Substance: INSULIN GLULISINE
     Indication: TYPE 2 DIABETES MELLITUS
     Dosage: 38 IU, QD
     Route: 065
  3. VALIUM [Concomitant]
     Active Substance: DIAZEPAM
     Indication: PRODUCT USED FOR UNKNOWN INDICATION
     Dosage: 5 DF, UNKNOWN
     Route: 048
  4. ABASAGLAR [Suspect]
     Active Substance: INSULIN GLARGINE
     Indication: TYPE 2 DIABETES MELLITUS
     Dosage: 20 IU, QD
     Route: 065
  5. INSULIN GLULISINE [Suspect]
     Active Substance: INSULIN GLULISINE
     Dosage: 28 IU, QD
     Route: 065
  6. RIVOTRIL [Concomitant]
     Active Substance: CLONAZEPAM
     Indication: PRODUCT USED FOR UNKNOWN INDICATION
     Dosage: 2.5 DF, UNKNOWN
     Route: 048

REACTIONS (3)
  - Hyperhidrosis [Unknown]
  - Asthenia [Unknown]
  - Hypoglycaemia [Unknown]

NARRATIVE: CASE EVENT DATE: 20160914
